FAERS Safety Report 16344680 (Version 1)
Quarter: 2019Q2

REPORT INFORMATION
  Report Type: Spontaneous
  Country: CN (occurrence: CN)
  Receive Date: 20190523
  Receipt Date: 20190523
  Transmission Date: 20190711
  Serious: Yes (Hospitalization, Other)
  Sender: FDA-Public Use
  Company Number: PHHY2019CN112443

PATIENT
  Age: 17 Year
  Sex: Male

DRUGS (12)
  1. AMIKACIN. [Suspect]
     Active Substance: AMIKACIN
     Indication: ANTIBIOTIC THERAPY
     Dosage: 0.5 G, QD
     Route: 065
  2. CEFOPERAZONE SODIUM AND SULBACTAM SODIUM [Suspect]
     Active Substance: CEFOPERAZONE SODIUM\SULBACTAM SODIUM
     Indication: MENINGITIS TUBERCULOUS
     Dosage: 3 G, UNK (EVERY 8 HRS)
     Route: 065
  3. ETHAMBUTOL [Suspect]
     Active Substance: ETHAMBUTOL HYDROCHLORIDE
     Indication: MENINGITIS TUBERCULOUS
     Route: 065
  4. ISONIAZID. [Suspect]
     Active Substance: ISONIAZID
     Indication: MENINGITIS TUBERCULOUS
     Dosage: UNK
     Route: 065
  5. LINEZOLID. [Suspect]
     Active Substance: LINEZOLID
     Indication: MENINGITIS TUBERCULOUS
     Route: 065
  6. MEROPENEM. [Suspect]
     Active Substance: MEROPENEM
     Indication: MENINGITIS TUBERCULOUS
     Route: 065
  7. TIGECYCLINE. [Suspect]
     Active Substance: TIGECYCLINE
     Indication: MENINGITIS TUBERCULOUS
     Dosage: 4 MG, BID
     Route: 037
  8. PIPERACILLIN AND TAZOBACTAM [Suspect]
     Active Substance: PIPERACILLIN SODIUM\TAZOBACTAM SODIUM
     Indication: MENINGITIS TUBERCULOUS
     Dosage: 4.5 G, UNK (EVERY 8 H)
     Route: 065
  9. DEXAMETHASONE. [Suspect]
     Active Substance: DEXAMETHASONE
     Indication: MENINGITIS TUBERCULOUS
     Dosage: LOW DOSE
     Route: 037
  10. FOSFOMYCIN [Suspect]
     Active Substance: FOSFOMYCIN
     Indication: MENINGITIS TUBERCULOUS
     Dosage: 4 G, UNK (EVERY 8 HRS)
     Route: 065
  11. PYRAZINAMIDE. [Suspect]
     Active Substance: PYRAZINAMIDE
     Indication: MENINGITIS TUBERCULOUS
     Route: 065
  12. VANCOMYCIN [Suspect]
     Active Substance: VANCOMYCIN
     Indication: MENINGITIS TUBERCULOUS
     Dosage: 1 G, BID
     Route: 065

REACTIONS (9)
  - Dyspnoea [Recovering/Resolving]
  - Altered state of consciousness [Unknown]
  - Confusional state [Unknown]
  - Chills [Unknown]
  - Oxygen saturation decreased [Unknown]
  - Acinetobacter infection [Unknown]
  - Restlessness [Recovering/Resolving]
  - Drug resistance [Unknown]
  - Pyrexia [Recovering/Resolving]

NARRATIVE: CASE EVENT DATE: 20180202
